FAERS Safety Report 8276183-2 (Version None)
Quarter: 2012Q2

REPORT INFORMATION
  Report Type: 
  Country: None (occurrence: None)
  Receive Date: 20120412
  Receipt Date: 20120316
  Transmission Date: 20120825
  Serious: Yes (Hospitalization)
  Sender: FDA-Public Use
  Company Number: US-ELI_LILLY_AND_COMPANY-US201203005502

PATIENT
  Sex: Female

DRUGS (17)
  1. NEXIUM [Concomitant]
  2. CALCIUM +VIT D [Concomitant]
  3. VITAMIN D [Concomitant]
  4. FORTEO [Suspect]
     Indication: OSTEOPOROSIS
     Dosage: 20 UG, QD
     Dates: start: 20120206, end: 20120301
  5. COZAAR [Concomitant]
  6. TYLENOL (CAPLET) [Concomitant]
     Indication: ARTHRALGIA
     Dosage: UNK, OTHER
  7. NAPROXEN (ALEVE) [Concomitant]
     Indication: ARTHRALGIA
     Dosage: UNK, OTHER
  8. NASONEX [Concomitant]
     Dosage: UNK, PRN
  9. PRAVASTATIN [Concomitant]
  10. MECLIZINE HYDROCHLORIDE [Concomitant]
     Dosage: UNK, PRN
  11. BETAMETHASONE VALERATE [Concomitant]
     Indication: LIMB DISCOMFORT
     Route: 061
  12. LABETALOL HCL [Concomitant]
  13. SYNTHROID [Concomitant]
  14. NORVASC [Concomitant]
  15. ASPIRIN [Concomitant]
     Dosage: 81 MG, UNK
  16. IRON [Concomitant]
  17. VITAMINS NOS [Concomitant]

REACTIONS (6)
  - CHEST PAIN [None]
  - OFF LABEL USE [None]
  - INVESTIGATION [None]
  - DRUG INTOLERANCE [None]
  - BLOOD SODIUM DECREASED [None]
  - ABDOMINAL PAIN [None]
